FAERS Safety Report 7523642-3 (Version None)
Quarter: 2011Q2

REPORT INFORMATION
  Report Type: 
  Country: None (occurrence: None)
  Receive Date: 20110603
  Receipt Date: 20110530
  Transmission Date: 20111010
  Serious: No
  Sender: FDA-Public Use
  Company Number: BR-ROCHE-724980

PATIENT
  Sex: Female
  Weight: 3.1 kg

DRUGS (2)
  1. ISOTRETINOIN [Suspect]
     Indication: ACNE
     Dosage: DOSE: 2 CAPS/DAY
     Route: 064
     Dates: start: 20100818, end: 20100825
  2. FLUOXETINE HCL [Concomitant]
     Indication: ANXIETY

REACTIONS (2)
  - NORMAL NEWBORN [None]
  - PREGNANCY [None]
